FAERS Safety Report 14292667 (Version 6)
Quarter: 2019Q1

REPORT INFORMATION
  Report Type: Report from Study
  Country: US (occurrence: US)
  Receive Date: 20171215
  Receipt Date: 20190314
  Transmission Date: 20190417
  Serious: No
  Sender: FDA-Public Use
  Company Number: PHEH2017US040522

PATIENT
  Age: 61 Year
  Sex: Female
  Weight: 80.27 kg

DRUGS (2)
  1. COSENTYX [Suspect]
     Active Substance: SECUKINUMAB
     Indication: PSORIATIC ARTHROPATHY
     Dosage: 150 MG, QMO
     Route: 058
  2. COSENTYX [Suspect]
     Active Substance: SECUKINUMAB
     Indication: RHEUMATOID ARTHRITIS
     Dosage: 300 MG, QMO
     Route: 058
     Dates: start: 201707

REACTIONS (6)
  - Product use in unapproved indication [Unknown]
  - Ear infection [Unknown]
  - Urinary tract infection [Unknown]
  - Ear infection viral [Recovered/Resolved]
  - Drug ineffective [Unknown]
  - Bronchitis [Unknown]

NARRATIVE: CASE EVENT DATE: 20181126
